FAERS Safety Report 5035638-4 (Version None)
Quarter: 2006Q2

REPORT INFORMATION
  Report Type: 
  Country: None (occurrence: None)
  Receive Date: 20060627
  Receipt Date: 20060626
  Transmission Date: 20061013
  Serious: Yes (Other)
  Sender: FDA-Public Use
  Company Number: AU-GLAXOSMITHKLINE-B0428763A

PATIENT
  Age: 55 Year
  Sex: Female

DRUGS (3)
  1. SERETIDE [Suspect]
     Indication: DRUG USE FOR UNKNOWN INDICATION
     Dosage: 1PUFF TWICE PER DAY
     Route: 055
  2. RABEPRAZOLE SODIUM [Concomitant]
  3. ANTIBIOTIC (UNSPECIFIED) [Concomitant]

REACTIONS (1)
  - RETINAL DETACHMENT [None]
